FAERS Safety Report 6074994-5 (Version None)
Quarter: 2009Q1

REPORT INFORMATION
  Report Type: 
  Country: None (occurrence: None)
  Receive Date: 20090212
  Receipt Date: 20090206
  Transmission Date: 20090719
  Serious: Yes (Hospitalization)
  Sender: FDA-Public Use
  Company Number: LT-ASTRAZENECA-2009SE00700

PATIENT
  Age: 74 Year
  Sex: Female

DRUGS (2)
  1. CRESTOR [Suspect]
     Indication: DYSLIPIDAEMIA
     Route: 048
     Dates: start: 20090103, end: 20090130
  2. ANTIHYPERTENSIVES (NOT SPECIFIED) [Concomitant]
     Indication: HYPERTENSION

REACTIONS (3)
  - BLOOD TRIGLYCERIDES INCREASED [None]
  - LABORATORY TEST ABNORMAL [None]
  - MYOCARDIAL ISCHAEMIA [None]
